FAERS Safety Report 12336624 (Version 2)
Quarter: 2016Q2

REPORT INFORMATION
  Report Type: Spontaneous
  Country: TR (occurrence: TR)
  Receive Date: 20160505
  Receipt Date: 20160518
  Transmission Date: 20160815
  Serious: Yes (Other)
  Sender: FDA-Public Use
  Company Number: TR-NOVOPROD-489243

PATIENT
  Age: 9 Year
  Sex: Male
  Weight: 25 kg

DRUGS (1)
  1. NORDITROPIN [Suspect]
     Active Substance: SOMATROPIN
     Indication: GROWTH HORMONE DEFICIENCY
     Dosage: 0.4 OR 0.5 MG
     Route: 058
     Dates: start: 2011, end: 2014

REACTIONS (2)
  - Osteochondrosis [Not Recovered/Not Resolved]
  - Drug effect incomplete [Unknown]
